FAERS Safety Report 9350324 (Version 1)
Quarter: 2013Q2

REPORT INFORMATION
  Report Type: Spontaneous
  Country: US (occurrence: None)
  Receive Date: 20130613
  Receipt Date: 20130613
  Transmission Date: 20140414
  Serious: No
  Sender: FDA-Public Use
  Company Number: None

PATIENT
  Age: 57 Year
  Sex: Female
  Weight: 81.65 kg

DRUGS (8)
  1. ATORVASTATIN [Suspect]
     Indication: BLOOD CHOLESTEROL INCREASED
     Route: 048
     Dates: start: 20120515, end: 20120719
  2. EFFEXOR [Concomitant]
  3. LIPITOR [Concomitant]
  4. AMLODIPINE [Concomitant]
  5. LOSARTAN [Concomitant]
  6. FISH OIL [Concomitant]
  7. IRON [Concomitant]
  8. VITAMINS [Concomitant]

REACTIONS (3)
  - Agitation [None]
  - Poor quality sleep [None]
  - Product substitution issue [None]
